FAERS Safety Report 5139715-9 (Version None)
Quarter: 2006Q4

REPORT INFORMATION
  Report Type: 
  Country: None (occurrence: None)
  Receive Date: 20061030
  Receipt Date: 20061020
  Transmission Date: 20070319
  Serious: Yes (Hospitalization)
  Sender: FDA-Public Use
  Company Number: JP-ABBOTT-06P-087-0347654-00

PATIENT
  Age: 15 Year
  Sex: Female

DRUGS (5)
  1. SEVOFLURANE [Suspect]
     Indication: GENERAL ANAESTHESIA
     Route: 055
  2. MIDAZOLAM HCL [Suspect]
     Indication: DRUG USE FOR UNKNOWN INDICATION
     Route: 042
  3. FENTANYL CITRATE [Concomitant]
     Indication: DRUG USE FOR UNKNOWN INDICATION
     Route: 065
  4. VECURONIUM BROMIDE [Concomitant]
     Indication: DRUG USE FOR UNKNOWN INDICATION
     Route: 065
  5. DROPERIDOL [Concomitant]
     Indication: DRUG USE FOR UNKNOWN INDICATION
     Route: 065

REACTIONS (2)
  - HYPERTHERMIA [None]
  - MUSCULOSKELETAL STIFFNESS [None]
